FAERS Safety Report 5109475-6 (Version None)
Quarter: 2006Q3

REPORT INFORMATION
  Report Type: 
  Country: None (occurrence: None)
  Receive Date: 20060918
  Receipt Date: 20060904
  Transmission Date: 20061208
  Serious: Yes (Hospitalization)
  Sender: FDA-Public Use
  Company Number: 2006109030

PATIENT
  Age: 14 Year
  Sex: Female

DRUGS (2)
  1. ZITHROMAX [Suspect]
     Indication: DRUG USE FOR UNKNOWN INDICATION
     Dosage: 250 MG X 6 TAB., ORAL
     Route: 048
  2. DRUG (DRUG) [Concomitant]

REACTIONS (3)
  - HYPERVENTILATION [None]
  - OEDEMA MOUTH [None]
  - SUICIDE ATTEMPT [None]
